FAERS Safety Report 6912571-1 (Version None)
Quarter: 2010Q3

REPORT INFORMATION
  Report Type: 
  Country: None (occurrence: None)
  Receive Date: 20100806
  Receipt Date: 20080716
  Transmission Date: 20110219
  Serious: No
  Sender: FDA-Public Use
  Company Number: US-PFIZER INC-2008058923

PATIENT
  Sex: Female
  Weight: 86.4 kg

DRUGS (7)
  1. DETROL LA [Suspect]
     Indication: HYPERTONIC BLADDER
     Route: 048
     Dates: start: 20080620
  2. VITAMIN TAB [Concomitant]
  3. PHENAZOPYRIDINE HCL TAB [Concomitant]
  4. ZOLOFT [Concomitant]
     Indication: DEPRESSION
  5. RISPERDAL [Concomitant]
  6. LEVOXYL [Concomitant]
  7. CLONAZEPAM [Concomitant]

REACTIONS (4)
  - HYPERAESTHESIA [None]
  - PURPURA [None]
  - RASH [None]
  - SKIN IRRITATION [None]
